FAERS Safety Report 7623406 (Version 4)
Quarter: 2014Q4

REPORT INFORMATION
  Report Type: Spontaneous
  Country: JP (occurrence: None)
  Receive Date: 20100923
  Receipt Date: 20141112
  Transmission Date: 20150529
  Serious: Yes (Life-Threatening, Hospitalization, Other)
  Sender: FDA-Public Use
  Company Number: 2008JP005720

PATIENT
  Age: 29 Year
  Sex: Female
  Weight: 47 kg

DRUGS (5)
  1. DEPAKENE-R (VALPROATE SODIUM) [Concomitant]
  2. ALEVIATIN [Suspect]
     Active Substance: PHENYTOIN SODIUM
     Indication: SEIZURE
     Dates: start: 20101021, end: 20101021
  3. PREDNISOLONE. [Suspect]
     Active Substance: PREDNISOLONE
     Indication: LUPUS NEPHRITIS
     Dosage: SEE IMAGE
     Route: 048
     Dates: end: 20081109
  4. TACROLIMUS. [Suspect]
     Active Substance: TACROLIMUS
     Indication: LUPUS NEPHRITIS
     Dosage: 3 MG, /D, ORAL; 2.5 MG, /D, ORAL
     Route: 048
     Dates: start: 20070911, end: 20080504
  5. SELARA [Suspect]
     Active Substance: EPLERENONE
     Indication: GENERALISED OEDEMA
     Dosage: 25 MG, /D, ORAL
     Route: 048
     Dates: start: 20080723, end: 20080807

REACTIONS (15)
  - Haemorrhage [None]
  - Lupus enteritis [None]
  - Blood uric acid increased [None]
  - Gastroenteritis salmonella [None]
  - Hyponatraemia [None]
  - Immunosuppressant drug level increased [None]
  - DNA antibody positive [None]
  - Generalised oedema [None]
  - Generalised tonic-clonic seizure [None]
  - Anticonvulsant drug level decreased [None]
  - Infection susceptibility increased [None]
  - Infection in an immunocompromised host [None]
  - Haematocrit decreased [None]
  - Treatment noncompliance [None]
  - Pneumonia chlamydial [None]

NARRATIVE: CASE EVENT DATE: 20071108
